FAERS Safety Report 5172284-6 (Version None)
Quarter: 2006Q4

REPORT INFORMATION
  Report Type: 
  Country: None (occurrence: None)
  Receive Date: 20061205
  Receipt Date: 20061023
  Transmission Date: 20070319
  Serious: Yes (Death, Other)
  Sender: FDA-Public Use
  Company Number: 2006115210

PATIENT
  Age: 49 Year
  Sex: Male
  Weight: 77.1115 kg

DRUGS (2)
  1. BEXTRA [Suspect]
     Indication: ARTHRITIS
     Dosage: 10 MG, 1-2 TIMES DAILY, ORAL
     Route: 048
     Dates: start: 20011201, end: 20040902
  2. BEXTRA [Suspect]
     Indication: NECK PAIN
     Dosage: 10 MG, 1-2 TIMES DAILY, ORAL
     Route: 048
     Dates: start: 20011201, end: 20040902

REACTIONS (5)
  - ARTERIAL DISORDER [None]
  - ARTERIAL OCCLUSIVE DISEASE [None]
  - CARDIOVASCULAR DISORDER [None]
  - CEREBROVASCULAR ACCIDENT [None]
  - INJURY [None]
